FAERS Safety Report 9080248 (Version 1)
Quarter: 2013Q1

REPORT INFORMATION
  Report Type: Spontaneous
  Country: KR (occurrence: KR)
  Receive Date: 20130218
  Receipt Date: 20130218
  Transmission Date: 20140127
  Serious: Yes (Hospitalization)
  Sender: FDA-Public Use
  Company Number: PHHY2013KR013742

PATIENT
  Age: 62 Year
  Sex: Male

DRUGS (1)
  1. METFORMIN [Suspect]
     Dosage: 1000 MG, UNK

REACTIONS (6)
  - Encephalopathy [Recovering/Resolving]
  - Dysarthria [Recovering/Resolving]
  - Gait disturbance [Recovering/Resolving]
  - Myoclonus [Recovering/Resolving]
  - Somnolence [Recovering/Resolving]
  - Condition aggravated [Recovering/Resolving]
